FAERS Safety Report 9799917 (Version 1)
Quarter: 2014Q1

REPORT INFORMATION
  Report Type: Spontaneous
  Country: SG (occurrence: SG)
  Receive Date: 20140106
  Receipt Date: 20140106
  Transmission Date: 20141002
  Serious: Yes (Other)
  Sender: FDA-Public Use
  Company Number: SG-BAYER-2014-000833

PATIENT
  Sex: 0

DRUGS (1)
  1. ACETYLSALICYLIC ACID (} 100 MG) [Suspect]

REACTIONS (1)
  - Angioedema [Unknown]
